FAERS Safety Report 8499838-3 (Version None)
Quarter: 2012Q3

REPORT INFORMATION
  Report Type: 
  Country: None (occurrence: None)
  Receive Date: 20120710
  Receipt Date: 20120705
  Transmission Date: 20120928
  Serious: No
  Sender: FDA-Public Use
  Company Number: US-PFIZER INC-2012161484

PATIENT
  Sex: Female

DRUGS (1)
  1. XALKORI [Suspect]
     Indication: LUNG CARCINOMA CELL TYPE UNSPECIFIED STAGE 0
     Dosage: 250 MG, 2X/DAY
     Route: 048
     Dates: start: 20120611, end: 20120616

REACTIONS (4)
  - VOMITING [None]
  - NAUSEA [None]
  - PAIN IN JAW [None]
  - CHEST PAIN [None]
